FAERS Safety Report 16744174 (Version 1)
Quarter: 2019Q3

REPORT INFORMATION
  Report Type: Spontaneous
  Country: SE (occurrence: SE)
  Receive Date: 20190827
  Receipt Date: 20190827
  Transmission Date: 20191005
  Serious: Yes (Hospitalization)
  Sender: FDA-Public Use
  Company Number: SE-ACCORD-152699

PATIENT
  Age: 88 Year
  Sex: Female

DRUGS (10)
  1. HYDROCHLOROTHIAZIDE. [Suspect]
     Active Substance: HYDROCHLOROTHIAZIDE
     Indication: PRODUCT USED FOR UNKNOWN INDICATION
     Dates: end: 20190728
  2. ALVEDON [Concomitant]
     Active Substance: ACETAMINOPHEN
     Dosage: VB
  3. DIBEN DRINK [Concomitant]
  4. CANODERM [Concomitant]
     Active Substance: UREA
  5. NOVORAPID [Concomitant]
     Active Substance: INSULIN ASPART
     Dosage: VB
  6. ENALAPRIL [Suspect]
     Active Substance: ENALAPRIL
     Indication: PRODUCT USED FOR UNKNOWN INDICATION
     Dates: end: 20190728
  7. NOVOMIX [Concomitant]
     Active Substance: INSULIN ASPART
     Dosage: 30
  8. ELIQUIS [Concomitant]
     Active Substance: APIXABAN
  9. METOPROLOL. [Concomitant]
     Active Substance: METOPROLOL
  10. FURIX [Concomitant]

REACTIONS (2)
  - Acute kidney injury [Recovering/Resolving]
  - Hyponatraemia [Recovering/Resolving]

NARRATIVE: CASE EVENT DATE: 201907
